FAERS Safety Report 6072792-X (Version None)
Quarter: 2009Q1

REPORT INFORMATION
  Report Type: 
  Country: None (occurrence: None)
  Receive Date: 20090205
  Receipt Date: 20090127
  Transmission Date: 20090719
  Serious: Yes (Hospitalization)
  Sender: FDA-Public Use
  Company Number: 2009-00316

PATIENT
  Age: 71 Year
  Sex: Male
  Weight: 53 kg

DRUGS (3)
  1. VELCADE [Suspect]
     Indication: MULTIPLE MYELOMA
     Dosage: 1.3 MG/M2, INTRAVENOUS
     Route: 042
     Dates: start: 20080923, end: 20090116
  2. ALKERAN [Suspect]
     Indication: MULTIPLE MYELOMA
     Dosage: 9 MG/M2, ORAL
     Route: 048
     Dates: start: 20080923, end: 20090109
  3. PREDNISONE [Suspect]
     Indication: MULTIPLE MYELOMA
     Dosage: 60 MG/M2, ORAL
     Route: 048
     Dates: start: 20080923, end: 20090109

REACTIONS (6)
  - BURSITIS INFECTIVE [None]
  - HAEMATOCRIT DECREASED [None]
  - HAEMOGLOBIN DECREASED [None]
  - IMMUNE SYSTEM DISORDER [None]
  - LYMPHOCYTE COUNT DECREASED [None]
  - STAPHYLOCOCCAL INFECTION [None]
